FAERS Safety Report 5235679-8 (Version None)
Quarter: 2007Q1

REPORT INFORMATION
  Report Type: 
  Country: None (occurrence: None)
  Receive Date: 20070212
  Receipt Date: 20070130
  Transmission Date: 20070707
  Serious: Yes (Other)
  Sender: FDA-Public Use
  Company Number: BR-ROCHE-481022

PATIENT
  Age: 23 Year
  Sex: Female

DRUGS (4)
  1. ROACUTAN [Suspect]
     Indication: ACNE
     Dosage: DOSAGE REGIMEN: 20 OR 40 MG WEEKLY.
     Route: 048
     Dates: end: 20061005
  2. ROACUTAN [Suspect]
     Route: 048
  3. GLIFAGE [Concomitant]
     Indication: POLYCYSTIC OVARIES
     Route: 048
  4. CONTRACEPTIVE NOS [Concomitant]
     Indication: CONTRACEPTION
     Route: 048
     Dates: end: 20061005

REACTIONS (2)
  - NO ADVERSE EFFECT [None]
  - PREGNANCY [None]
